FAERS Safety Report 11695628 (Version 2)
Quarter: 2015Q4

REPORT INFORMATION
  Report Type: Spontaneous
  Country: US (occurrence: US)
  Receive Date: 20151104
  Receipt Date: 20151119
  Transmission Date: 20160304
  Serious: Yes (Other)
  Sender: FDA-Public Use
  Company Number: US-BEH-2015055295

PATIENT
  Age: 64 Year
  Sex: Female
  Weight: 57 kg

DRUGS (19)
  1. ZOLPIDEM [Concomitant]
     Active Substance: ZOLPIDEM\ZOLPIDEM TARTRATE
  2. LIBRAX [Concomitant]
     Active Substance: CHLORDIAZEPOXIDE HYDROCHLORIDE\CLIDINIUM BROMIDE
  3. HIZENTRA [Suspect]
     Active Substance: HUMAN IMMUNOGLOBULIN G
     Indication: IMMUNODEFICIENCY COMMON VARIABLE
     Dosage: 4 GM 20 ML VIAL
     Route: 058
     Dates: start: 20140331
  4. MUCINEX [Concomitant]
     Active Substance: GUAIFENESIN
  5. HIZENTRA [Suspect]
     Active Substance: HUMAN IMMUNOGLOBULIN G
     Indication: HYPOGAMMAGLOBULINAEMIA
     Dosage: 1 GM 5 ML VIAL
     Route: 058
     Dates: start: 20140331
  6. SYNTHROID [Concomitant]
     Active Substance: LEVOTHYROXINE SODIUM
  7. METHOCARBAMOL. [Concomitant]
     Active Substance: METHOCARBAMOL
  8. ITRACONAZOLE. [Concomitant]
     Active Substance: ITRACONAZOLE
  9. CLOTRIMAZOLE. [Concomitant]
     Active Substance: CLOTRIMAZOLE
  10. ALBUTEROL. [Concomitant]
     Active Substance: ALBUTEROL
  11. NORCO [Concomitant]
     Active Substance: ACETAMINOPHEN\HYDROCODONE BITARTRATE
  12. VANCOCIN [Concomitant]
     Active Substance: VANCOMYCIN HYDROCHLORIDE
  13. MULTIVITAMIN [Concomitant]
     Active Substance: VITAMINS
  14. L-LYSINE [Concomitant]
     Active Substance: LYSINE
  15. DIPHENHYDRAMINE. [Concomitant]
     Active Substance: DIPHENHYDRAMINE
  16. EPIPEN [Concomitant]
     Active Substance: EPINEPHRINE
  17. DESMOPRESSIN [Concomitant]
     Active Substance: DESMOPRESSIN
  18. ATIVAN [Concomitant]
     Active Substance: LORAZEPAM
  19. REMERON [Concomitant]
     Active Substance: MIRTAZAPINE

REACTIONS (5)
  - Chest discomfort [Unknown]
  - Kidney infection [Unknown]
  - Drug dose omission [Unknown]
  - Rash [Unknown]
  - Chest pain [Unknown]

NARRATIVE: CASE EVENT DATE: 20150917
